FAERS Safety Report 13120771 (Version 1)
Quarter: 2017Q1

REPORT INFORMATION
  Report Type: Spontaneous
  Country: GR (occurrence: GR)
  Receive Date: 20170117
  Receipt Date: 20170117
  Transmission Date: 20170428
  Serious: Yes (Other)
  Sender: FDA-Public Use
  Company Number: PHHY2016GR162773

PATIENT
  Age: 80 Year
  Sex: Male

DRUGS (1)
  1. TASIGNA [Suspect]
     Active Substance: NILOTINIB
     Indication: CHRONIC MYELOID LEUKAEMIA
     Dosage: UNK
     Route: 065
     Dates: start: 20161019, end: 20161029

REACTIONS (4)
  - Palpitations [Recovered/Resolved]
  - Discomfort [Recovered/Resolved]
  - Dyspnoea [Unknown]
  - Bradycardia [Recovered/Resolved]
